FAERS Safety Report 9067334 (Version 1)
Quarter: 2013Q1

REPORT INFORMATION
  Report Type: Spontaneous
  Country: FR (occurrence: FR)
  Receive Date: 20130128
  Receipt Date: 20130128
  Transmission Date: 20140127
  Serious: Yes (Hospitalization, Other)
  Sender: FDA-Public Use
  Company Number: FR-009507513-1301FRA010490

PATIENT
  Sex: Male
  Weight: 77 kg

DRUGS (12)
  1. EMEND [Suspect]
     Indication: PROPHYLAXIS OF NAUSEA AND VOMITING
     Dosage: 125 MG, QD
     Route: 048
     Dates: start: 20120315, end: 20120315
  2. EMEND [Suspect]
     Dosage: 80 MG, QD
     Route: 048
     Dates: start: 20120316, end: 20120319
  3. VIDAZA [Suspect]
     Dosage: 75 MG/M2, QD
     Route: 042
     Dates: start: 20120315, end: 20120321
  4. ZOPHREN [Suspect]
     Dosage: 8 MG, QD
     Route: 042
     Dates: start: 20120315, end: 20120315
  5. ZOPHREN [Suspect]
     Dosage: 8 MG, QD
     Route: 042
     Dates: start: 20120317, end: 20120317
  6. ZOPHREN [Suspect]
     Dosage: 8 MG, QD
     Route: 042
     Dates: start: 20120319, end: 20120319
  7. INEXIUM [Suspect]
     Dosage: 40 MG, QD
     Route: 048
     Dates: start: 20120320
  8. ARANESP (DARBEPOETIN ALFA) [Concomitant]
     Dosage: 50 MICROGRAM, UNK
  9. ATARAX (HYDROXYZINE HYDROCHLORIDE) [Concomitant]
  10. VENOFER [Concomitant]
     Dosage: UNK
     Dates: start: 20120314, end: 20120314
  11. VENOFER [Concomitant]
     Dosage: UNK
     Dates: start: 20120316, end: 20120316
  12. ZELITREX [Concomitant]
     Dosage: 3 DF, QD

REACTIONS (1)
  - Renal failure acute [Recovered/Resolved with Sequelae]
